FAERS Safety Report 7633134-9 (Version None)
Quarter: 2011Q3

REPORT INFORMATION
  Report Type: 
  Country: None (occurrence: None)
  Receive Date: 20110725
  Receipt Date: 20110713
  Transmission Date: 20111222
  Serious: Yes (Other)
  Sender: FDA-Public Use
  Company Number: JP-ROCHE-752587

PATIENT
  Age: 61 Year
  Sex: Female

DRUGS (3)
  1. AVASTIN [Suspect]
     Indication: CHOROIDAL NEOVASCULARISATION
     Dosage: DOSAGE IS UNCERTAIN.
     Route: 031
     Dates: start: 20080428, end: 20080428
  2. AVASTIN [Suspect]
     Dosage: NOTE: DOSAGE IS UNCERTAIN.
     Route: 031
     Dates: start: 20080501, end: 20080501
  3. AVASTIN [Suspect]
     Route: 031
     Dates: start: 20080601, end: 20080601

REACTIONS (2)
  - RETINAL DETACHMENT [None]
  - MACULAR HOLE [None]
